FAERS Safety Report 18974888 (Version 2)
Quarter: 2022Q2

REPORT INFORMATION
  Report Type: Spontaneous
  Country: DE (occurrence: DE)
  Receive Date: 20210305
  Receipt Date: 20220510
  Transmission Date: 20220720
  Serious: Yes (Other)
  Sender: FDA-Public Use
  Company Number: None

PATIENT
  Age: 31 Year
  Sex: Female
  Weight: 70 kg

DRUGS (5)
  1. OLANZAPINE [Suspect]
     Active Substance: OLANZAPINE
     Indication: Bipolar disorder
     Dosage: 7.5 MG, QD (7.5 MG/D) (AT 0-39.5 WEEKS OF GESTATION)
     Route: 048
     Dates: start: 20191219
  2. OLANZAPINE [Suspect]
     Active Substance: OLANZAPINE
     Dosage: 7.5 MG, QD (7.5 MG/D) (AT 0-39.5 WEEKS OF GESTATION)
     Route: 048
     Dates: start: 20200922
  3. CITALOPRAM [Suspect]
     Active Substance: CITALOPRAM HYDROBROMIDE
     Indication: Bipolar disorder
     Dosage: 10 MG, QD (10MG/D) (AT 0-37 WEEKS OF GESTATION)
     Route: 048
  4. URSODIOL [Concomitant]
     Active Substance: URSODIOL
     Indication: Cholestasis of pregnancy
     Dosage: 1000 MG, QD (2 SEPARATED DOSES) (AT 34-39.5 WEEK OF GESTATION)
     Route: 048
  5. CYTOTEC [Concomitant]
     Active Substance: MISOPROSTOL
     Indication: Labour induction
     Dosage: UNK UNK, UNKNOWN
     Route: 048
     Dates: start: 20200922, end: 20200922

REACTIONS (2)
  - Gestational diabetes [Recovered/Resolved]
  - Maternal exposure during pregnancy [Unknown]
